FAERS Safety Report 5322702-5 (Version None)
Quarter: 2007Q2

REPORT INFORMATION
  Report Type: 
  Country: None (occurrence: None)
  Receive Date: 20070511
  Receipt Date: 20070505
  Transmission Date: 20071010
  Serious: Yes (Other)
  Sender: FDA-Public Use
  Company Number: US-PFIZER INC-2006068348

PATIENT
  Sex: Female
  Weight: 72.6 kg

DRUGS (2)
  1. AROMASIN [Suspect]
     Indication: BREAST CANCER
  2. ARIMIDEX [Suspect]

REACTIONS (3)
  - AGITATION [None]
  - ANXIETY [None]
  - INSOMNIA [None]
